FAERS Safety Report 6019709-1 (Version None)
Quarter: 2008Q4

REPORT INFORMATION
  Report Type: 
  Country: None (occurrence: None)
  Receive Date: 20081224
  Receipt Date: 20081217
  Transmission Date: 20090506
  Serious: Yes (Hospitalization)
  Sender: FDA-Public Use
  Company Number: BE-WATSON-2008-07431

PATIENT
  Age: 52 Year
  Sex: Female

DRUGS (5)
  1. SERTRALINE HYDROCHLORIDE [Suspect]
     Indication: DEPRESSION
     Dosage: 20-40 MG, DAILY
     Dates: end: 20050601
  2. TRAZODONE HYDROCHLORIDE [Suspect]
     Indication: DEPRESSION
     Dosage: 150 MG, DAILY
  3. LORAZEPAM [Suspect]
     Indication: INSOMNIA
     Dosage: 2.5 MG QHS PRN
     Route: 048
  4. ALPRAZOLAM [Suspect]
     Indication: INSOMNIA
     Dosage: 0.5 MG, DAILY
  5. RISPERIDONE [Suspect]
     Indication: PSYCHOTIC DISORDER
     Dosage: 2 MG, DAILY
     Route: 048
     Dates: end: 20050901

REACTIONS (1)
  - OSTEOPOROSIS [None]
